FAERS Safety Report 8883334 (Version 5)
Quarter: 2012Q4

REPORT INFORMATION
  Report Type: Report from Study
  Country: US (occurrence: US)
  Receive Date: 20121102
  Receipt Date: 20121217
  Transmission Date: 20130627
  Serious: Yes (Hospitalization)
  Sender: FDA-Public Use
  Company Number: US-JNJFOC-20121016154

PATIENT
  Age: 5 Year
  Sex: Male
  Weight: 14.97 kg

DRUGS (5)
  1. REMICADE [Suspect]
     Indication: INFLAMMATORY BOWEL DISEASE
     Route: 042
     Dates: start: 20110324, end: 20120907
  2. HUMIRA [Concomitant]
     Dates: start: 20120925
  3. HUMIRA [Concomitant]
     Dates: start: 20121029
  4. METHOTREXATE [Concomitant]
  5. PROTOPIC [Concomitant]

REACTIONS (2)
  - Anal stenosis [Recovered/Resolved]
  - Bacteraemia [Recovered/Resolved]
